FAERS Safety Report 4916453-6 (Version None)
Quarter: 2006Q1

REPORT INFORMATION
  Report Type: 
  Country: None (occurrence: None)
  Receive Date: 20060214
  Receipt Date: 20060203
  Transmission Date: 20060701
  Serious: Yes (Other)
  Sender: FDA-Public Use
  Company Number: 200610535GDS

PATIENT
  Age: 70 Year
  Sex: Male

DRUGS (4)
  1. CIPROFLOXACIN [Suspect]
     Dosage: 250 MG, BID
  2. FLOMAX [Suspect]
     Dosage: 0.4 MG, TOTAL DAILY
  3. HYDROCHLOROTHIAZIDE [Concomitant]
  4. VERAPAMIL [Concomitant]

REACTIONS (6)
  - DYSPHAGIA [None]
  - OEDEMA PERIPHERAL [None]
  - PERIORBITAL OEDEMA [None]
  - PHARYNGEAL OEDEMA [None]
  - PRURITUS [None]
  - RASH [None]
